FAERS Safety Report 6866771-X (Version None)
Quarter: 2010Q2

REPORT INFORMATION
  Report Type: 
  Country: None (occurrence: None)
  Receive Date: 20100607
  Receipt Date: 20080520
  Transmission Date: 20101027
  Serious: No
  Sender: FDA-Public Use
  Company Number: 2008-00081

PATIENT
  Age: 62 Year
  Sex: Male
  Weight: 140.6151 kg

DRUGS (7)
  1. ZICAM COLD REMEDY NASAL GEL [Suspect]
     Indication: NASOPHARYNGITIS
     Dosage: QD X 1 DAY
     Dates: start: 20080514, end: 20080514
  2. COREG [Concomitant]
  3. PLAVIX [Concomitant]
  4. ASPIRIN [Concomitant]
  5. NIASPAN [Concomitant]
  6. LISINOPRIL [Concomitant]
  7. AVANDAMET [Concomitant]

REACTIONS (3)
  - AGEUSIA [None]
  - ANOSMIA [None]
  - NASAL DISCOMFORT [None]
